FAERS Safety Report 10196731 (Version 3)
Quarter: 2014Q3

REPORT INFORMATION
  Report Type: Spontaneous
  Country: AU (occurrence: None)
  Receive Date: 20140522
  Receipt Date: 20140721
  Transmission Date: 20150326
  Serious: Yes (Other)
  Sender: FDA-Public Use
  Company Number: AUR-APL-2014-05956

PATIENT
  Sex: Female

DRUGS (4)
  1. ASPIRIN (ACETYLSALICYLIC ACID) [Concomitant]
     Active Substance: ASPIRIN
  2. NIFEDIPINE (NIFEDIPINE) (NIFEDIPINE) [Concomitant]
     Active Substance: NIFEDIPINE
  3. AURO-QUETIPAINE (QUETIAPINE) FILM-COATED TABLET, 25MG? [Suspect]
     Active Substance: QUETIAPINE
     Indication: PRODUCT USED FOR UNKNOWN INDICATION
  4. ELEVIT RDI (MINERALS NOS W/VITAMINS NOS) [Concomitant]

REACTIONS (3)
  - Caesarean section [None]
  - Prolonged labour [None]
  - Exposure during pregnancy [None]

NARRATIVE: CASE EVENT DATE: 20121114
